FAERS Safety Report 23681575 (Version 1)
Quarter: 2024Q1

REPORT INFORMATION
  Report Type: Report from Study
  Country: US (occurrence: US)
  Receive Date: 20240328
  Receipt Date: 20240328
  Transmission Date: 20240410
  Serious: Yes (Other)
  Sender: FDA-Public Use
  Company Number: US-ABBVIE-5695125

PATIENT
  Sex: Male

DRUGS (1)
  1. HUMIRA [Suspect]
     Active Substance: ADALIMUMAB
     Indication: Rheumatoid arthritis
     Dosage: CF/FORM STRENGTH: 40 MG
     Route: 058
     Dates: start: 20230911

REACTIONS (3)
  - Pyoderma gangrenosum [Recovering/Resolving]
  - Ulcer [Recovering/Resolving]
  - Scratch [Unknown]
